FAERS Safety Report 8453681 (Version 3)
Quarter: 2013Q2

REPORT INFORMATION
  Report Type: Spontaneous
  Country: BR (occurrence: BR)
  Receive Date: 20120312
  Receipt Date: 20130404
  Transmission Date: 20140414
  Serious: Yes (Other)
  Sender: FDA-Public Use
  Company Number: BR-PFIZER INC-2012016355

PATIENT
  Age: 43 Year
  Sex: Female
  Weight: 72 kg

DRUGS (9)
  1. CHAMPIX [Suspect]
     Indication: SMOKING CESSATION THERAPY
     Dosage: UNK
     Route: 048
     Dates: start: 20111101
  2. CHAMPIX [Suspect]
     Dosage: TWO TABLETS DAILY
     Route: 048
  3. CHAMPIX [Suspect]
     Dosage: TWO TABLETS DAILY
     Route: 048
     Dates: start: 20120308, end: 201203
  4. CHAMPIX [Suspect]
     Dosage: 1 MG, 2X/DAY
     Route: 048
     Dates: start: 201203, end: 201203
  5. BUPROPION HCL [Suspect]
     Dosage: UNK
  6. NICOTINE [Suspect]
     Dosage: UNK
  7. GARDENAL [Concomitant]
     Indication: CONVULSION
     Dosage: 100 MG, 1X/DAY
     Dates: start: 2010
  8. RIVOTRIL [Concomitant]
     Indication: PANIC DISORDER
     Dosage: 4 MG (TWO TABLETS OF 2MG), 1X/DAY
     Dates: start: 201110
  9. RIVOTRIL [Concomitant]
     Indication: ANXIETY

REACTIONS (8)
  - Hypertension [Not Recovered/Not Resolved]
  - Somnolence [Not Recovered/Not Resolved]
  - Feeling abnormal [Not Recovered/Not Resolved]
  - Gait disturbance [Not Recovered/Not Resolved]
  - Drug ineffective [Unknown]
  - Nervousness [Not Recovered/Not Resolved]
  - Anxiety [Not Recovered/Not Resolved]
  - Abdominal pain upper [Unknown]
